FAERS Safety Report 5170431-3 (Version None)
Quarter: 2006Q4

REPORT INFORMATION
  Report Type: 
  Country: None (occurrence: None)
  Receive Date: 20061212
  Receipt Date: 20001030
  Transmission Date: 20070319
  Serious: Yes (Hospitalization, Disabling)
  Sender: FDA-Public Use
  Company Number: FR-BOEHRINGER INGELHEIM PHARMACEUTICALS, INC.-2000-FF-S0634

PATIENT
  Sex: Male
  Weight: 76 kg

DRUGS (3)
  1. VIRAMUNE [Suspect]
     Indication: ACQUIRED IMMUNODEFICIENCY SYNDROME
     Route: 048
     Dates: start: 20000923, end: 20001013
  2. VIRAMUNE [Suspect]
     Route: 048
     Dates: start: 20001014, end: 20001020
  3. COMBIVIR [Concomitant]
     Indication: ACQUIRED IMMUNODEFICIENCY SYNDROME
     Route: 048
     Dates: start: 20000923, end: 20001020

REACTIONS (5)
  - CYTOLYTIC HEPATITIS [None]
  - EOSINOPHILIA [None]
  - HYPERSENSITIVITY [None]
  - PYREXIA [None]
  - RASH [None]
